FAERS Safety Report 10585661 (Version 1)
Quarter: 2014Q4

REPORT INFORMATION
  Report Type: Spontaneous
  Country: GB (occurrence: GB)
  Receive Date: 20141114
  Receipt Date: 20141114
  Transmission Date: 20150529
  Serious: Yes (Other)
  Sender: FDA-Public Use
  Company Number: GB-ACTAVISPR-2014-24290

PATIENT
  Sex: Male

DRUGS (1)
  1. PREDNISOLONE (UNKNOWN) [Suspect]
     Active Substance: PREDNISOLONE
     Indication: LOWER RESPIRATORY TRACT INFECTION
     Dosage: 30 MG, DAILY
     Route: 048

REACTIONS (35)
  - Diabetes mellitus [Unknown]
  - Cataract [Unknown]
  - Thinking abnormal [Unknown]
  - Dizziness [Unknown]
  - Hypertension [Unknown]
  - Muscular weakness [Unknown]
  - Alopecia [Unknown]
  - Dyspepsia [Unknown]
  - Abdominal distension [Unknown]
  - Skin atrophy [Unknown]
  - Contusion [Unknown]
  - Haemorrhage [Unknown]
  - Abdominal discomfort [Unknown]
  - Weight increased [Unknown]
  - Onychoclasis [Unknown]
  - Anxiety [Unknown]
  - Oral candidiasis [Unknown]
  - Swelling face [Unknown]
  - Mental impairment [Unknown]
  - Muscle atrophy [Unknown]
  - Blood glucose abnormal [Unknown]
  - Malaise [Unknown]
  - Hypotonia [Unknown]
  - Confusional state [Unknown]
  - Asthenia [Unknown]
  - Impaired healing [Unknown]
  - Cellulitis [Unknown]
  - Immune system disorder [Unknown]
  - Swelling [Unknown]
  - Skin disorder [Unknown]
  - Urine potassium decreased [Unknown]
  - Memory impairment [Unknown]
  - Insomnia [Unknown]
  - Fatigue [Unknown]
  - Pain [Unknown]
